FAERS Safety Report 8974870 (Version 1)
Quarter: 2012Q4

REPORT INFORMATION
  Report Type: Spontaneous
  Country: US (occurrence: None)
  Receive Date: 20121218
  Receipt Date: 20121218
  Transmission Date: 20130627
  Serious: Yes (Other)
  Sender: FDA-Public Use
  Company Number: None

PATIENT
  Age: 53 Year
  Sex: Male
  Weight: 65.77 kg

DRUGS (1)
  1. ALPRAZOLAM [Suspect]
     Indication: NEUROPATHY
     Dates: start: 20121206, end: 20121217

REACTIONS (13)
  - Drug ineffective [None]
  - Product substitution issue [None]
  - Pain [None]
  - Abdominal pain upper [None]
  - Tremor [None]
  - Nausea [None]
  - Irritability [None]
  - Activities of daily living impaired [None]
  - Insomnia [None]
  - Abdominal discomfort [None]
  - Dysuria [None]
  - Drug withdrawal syndrome [None]
  - Product quality issue [None]
